FAERS Safety Report 5280033-6 (Version None)
Quarter: 2007Q1

REPORT INFORMATION
  Report Type: 
  Country: None (occurrence: None)
  Receive Date: 20070329
  Receipt Date: 20070326
  Transmission Date: 20070707
  Serious: Yes (Hospitalization)
  Sender: FDA-Public Use
  Company Number: DE-BAYER-200611161BVD

PATIENT
  Age: 56 Year
  Sex: Male

DRUGS (3)
  1. NEXAVAR [Suspect]
     Indication: RENAL CELL CARCINOMA STAGE UNSPECIFIED
     Dosage: UNIT DOSE: 400 MG
     Route: 048
     Dates: start: 20060714
  2. ROFERON-A [Concomitant]
     Dates: start: 20050801, end: 20060401
  3. GEMCITABINE [Concomitant]
     Dates: start: 20050801, end: 20060401

REACTIONS (5)
  - APHASIA [None]
  - CEREBRAL INFARCTION [None]
  - CEREBROVASCULAR ACCIDENT [None]
  - DYSPHAGIA [None]
  - HEMIPARESIS [None]
